FAERS Safety Report 9148076 (Version 2)
Quarter: 2013Q3

REPORT INFORMATION
  Report Type: Spontaneous
  Country: GB (occurrence: GB)
  Receive Date: 20130308
  Receipt Date: 20130710
  Transmission Date: 20140515
  Serious: Yes (Hospitalization, Other)
  Sender: FDA-Public Use
  Company Number: GB-009507513-1303GBR003520

PATIENT
  Age: 49 Year
  Sex: Male
  Weight: 80 kg

DRUGS (4)
  1. VICTRELIS [Suspect]
     Indication: HEPATITIS C
     Dosage: TOTAL DAILY DOSE: 800 MG, TID
     Route: 048
     Dates: start: 20130206
  2. PEGASYS [Suspect]
     Dosage: UNK
  3. COPEGUS [Suspect]
     Dosage: UNK
  4. EPADERM [Concomitant]
     Dosage: UNK
     Dates: start: 20130307

REACTIONS (4)
  - Blister [Not Recovered/Not Resolved]
  - Skin disorder [Unknown]
  - Pyrexia [Unknown]
  - Rash [Not Recovered/Not Resolved]
